FAERS Safety Report 4632909-8 (Version None)
Quarter: 2005Q2

REPORT INFORMATION
  Report Type: 
  Country: None (occurrence: None)
  Receive Date: 20050411
  Receipt Date: 20050411
  Transmission Date: 20051028
  Serious: No
  Sender: FDA-Public Use
  Company Number: None

PATIENT
  Sex: Female
  Weight: 53 kg

DRUGS (2)
  1. CYTARABINE [Suspect]
     Indication: ACUTE MYELOID LEUKAEMIA
     Dosage: SEE IMAGE
     Route: 042
     Dates: start: 20050107
  2. DAUNORUBICIN HCL [Suspect]
     Dosage: SEE IMAGE

REACTIONS (7)
  - ATRIAL TACHYCARDIA [None]
  - BACTERIAL INFECTION [None]
  - BLOOD CULTURE POSITIVE [None]
  - NEUTROPHIL COUNT DECREASED [None]
  - PALPITATIONS [None]
  - STAPHYLOCOCCAL INFECTION [None]
  - SUPRAVENTRICULAR TACHYCARDIA [None]
